FAERS Safety Report 4445536-2 (Version None)
Quarter: 2004Q3

REPORT INFORMATION
  Report Type: 
  Country: None (occurrence: None)
  Receive Date: 20040806
  Receipt Date: 20030902
  Transmission Date: 20050211
  Serious: Yes (Other)
  Sender: FDA-Public Use
  Company Number: 2003037075

PATIENT
  Age: 4 Year
  Sex: Female
  Weight: 21.0923 kg

DRUGS (1)
  1. ZARONTIN SYRUP [Suspect]
     Indication: PETIT MAL EPILEPSY
     Dosage: 500 MG (BID), ORAL
     Route: 048
     Dates: start: 20030827, end: 20030828

REACTIONS (3)
  - RASH [None]
  - SCAR [None]
  - URTICARIA [None]
